FAERS Safety Report 8457315-X (Version None)
Quarter: 2012Q2

REPORT INFORMATION
  Report Type: 
  Country: None (occurrence: None)
  Receive Date: 20120621
  Receipt Date: 20120619
  Transmission Date: 20120825
  Serious: Yes (Other)
  Sender: FDA-Public Use
  Company Number: US-PFIZER INC-2012075403

PATIENT
  Sex: Female
  Weight: 95.238 kg

DRUGS (24)
  1. LEVEMIR [Concomitant]
     Indication: TYPE 2 DIABETES MELLITUS
     Dosage: UNK, QD AT HS
  2. VENTOLIN [Concomitant]
     Indication: COUGH
     Dosage: 108 (90 BASE) MCG/ACT, AS NEEDED (1-2 PUFFS EVERY 6 HR )
     Dates: start: 20100713
  3. LASIX [Concomitant]
     Dosage: 40 MG, AS NEEDED (1 TABLET DAILY)
     Route: 048
     Dates: start: 20110526
  4. CELEBREX [Suspect]
     Indication: OSTEOARTHRITIS
     Dosage: 100 MG, 2X/DAY
     Route: 048
  5. LIVALO [Concomitant]
     Dosage: 4 MG, DAILY (1 TABLET)
     Route: 048
     Dates: start: 20111116
  6. NASONEX [Concomitant]
     Dosage: 50 MCG/ACT, 1X/DAY (USE 2 SPRAYS IN EACH NOSTRIL)
     Dates: start: 20120322
  7. COUMADIN [Concomitant]
     Dosage: 1 MG, DAILY (1 TABLET)
     Route: 048
     Dates: start: 20110114
  8. IPRATROPIUM BROMIDE [Concomitant]
     Dosage: 0.02 %, 4X/DAY ( USE 1 UNIT DOSE IN NEBULIZER)
     Dates: start: 20100809
  9. LIDODERM [Concomitant]
     Dosage: 5 %, (APPLY 1 PATCH TO AFFECTED AREA + LEAVE IN PLACE X12 HRS THEN REMOVE AND LEAVE OFF X12 HRS)
     Dates: start: 20100205
  10. ALBUTEROL SULFATE [Concomitant]
     Indication: DYSPNOEA
     Dosage: 1.25 MG/3ML, EVERY 4-6 HOURS
     Dates: start: 20100809
  11. CINNAMON [Concomitant]
     Dosage: 500 MG, DAILY (1 CAPSULE)
     Route: 048
     Dates: start: 20100830
  12. KLOR-CON [Concomitant]
     Dosage: 10 MEQ, ALTERNATE DAY
     Route: 048
     Dates: start: 20100507
  13. ALBUTEROL SULFATE [Concomitant]
     Indication: WHEEZING
  14. ALPRAZOLAM [Concomitant]
     Dosage: 0.25 MG, 4X/DAY (AS NEEDED)
     Route: 048
     Dates: start: 20100107
  15. CARDIZEM CD [Concomitant]
     Dosage: 360 MG, DAILY (1 CAPSULE)
     Route: 048
     Dates: start: 20091221
  16. HYDROCODONE BITARTRATE + ACETAMINOPHEN [Concomitant]
     Dosage: 5-325 MG, AS NEEDED (1 TABLET EVERY 4 TO 6 HOURS)
     Route: 048
     Dates: start: 20100326
  17. METOPROLOL TARTRATE [Concomitant]
     Dosage: 50 MG, (1 TABLET EVERY 12 HOURS)
     Route: 048
     Dates: start: 20110831
  18. COUMADIN [Concomitant]
     Dosage: 2 MG, DAILY (2 TABLETS)
     Route: 048
     Dates: start: 20101020
  19. COMBIVENT [Concomitant]
     Dosage: 18-103 MCG/ACT, 4X/DAY (USE 2 PUFFS)
     Dates: start: 20100713
  20. CYCLOBENZAPRINE HYDROCHLORIDE [Concomitant]
     Dosage: 10 MG, 3X/DAY (1 TABLET)
     Route: 048
     Dates: start: 20110602
  21. MULTI-VITAMIN [Concomitant]
     Dosage: UNK, 1X/DAY (1 TABLET)
     Route: 048
     Dates: start: 20100507
  22. OMEPRAZOLE [Concomitant]
     Dosage: 40 MG, DAILY (1 CAPSULE)
     Route: 048
     Dates: start: 20110210
  23. COUMADIN [Concomitant]
     Dosage: 5 MG, DAILY (1 TABLET AS DIRECTED)
     Route: 048
     Dates: start: 20100507
  24. VENTOLIN [Concomitant]
     Indication: WHEEZING

REACTIONS (5)
  - BLADDER CANCER [None]
  - ABDOMINAL HERNIA [None]
  - PAIN [None]
  - SPINAL COLUMN STENOSIS [None]
  - NASOPHARYNGITIS [None]
